FAERS Safety Report 17895436 (Version 2)
Quarter: 2020Q3

REPORT INFORMATION
  Report Type: Spontaneous
  Country: US (occurrence: US)
  Receive Date: 20200615
  Receipt Date: 20200818
  Transmission Date: 20201103
  Serious: Yes (Other)
  Sender: FDA-Public Use
  Company Number: US-REGENERON PHARMACEUTICALS, INC.-2020-42596

PATIENT

DRUGS (1)
  1. EYLEA [Suspect]
     Active Substance: AFLIBERCEPT
     Indication: RETINAL OEDEMA
     Dosage: UNK
     Route: 031
     Dates: start: 20200528

REACTIONS (2)
  - Off label use [Unknown]
  - Squamous cell carcinoma of the tongue [Not Recovered/Not Resolved]
